FAERS Safety Report 6275927-9 (Version None)
Quarter: 2009Q3

REPORT INFORMATION
  Report Type: 
  Country: None (occurrence: None)
  Receive Date: 20090720
  Receipt Date: 20090711
  Transmission Date: 20100115
  Serious: Yes (Other)
  Sender: FDA-Public Use
  Company Number: CHPA2009US15187

PATIENT
  Sex: Female

DRUGS (1)
  1. DOAN'S EXTRA STRENGTHE (NCH) (MAGNESIUM SALICYLATE) TABLET [Suspect]
     Indication: ANALGESIA
     Dosage: 1160 MG, ONCE/SINGL, ORAL
     Route: 048
     Dates: start: 20090711, end: 20090711

REACTIONS (5)
  - DYSPEPSIA [None]
  - GASTROINTESTINAL HAEMORRHAGE [None]
  - HAEMATEMESIS [None]
  - MALAISE [None]
  - VOMITING [None]
